FAERS Safety Report 8824947 (Version 2)
Quarter: 2012Q4

REPORT INFORMATION
  Report Type: 
  Country: DE (occurrence: DE)
  Receive Date: 20121004
  Receipt Date: 20121123
  Transmission Date: 20130627
  Serious: Yes (Hospitalization)
  Sender: FDA-Public Use
  Company Number: DE-PFIZER INC-2012242662

PATIENT
  Sex: Female
  Weight: 102 kg

DRUGS (10)
  1. GENOTROPIN [Suspect]
     Indication: GROWTH HORMONE DEFICIENCY
     Dosage: 0.2 mg, 7/wk
     Route: 058
     Dates: start: 20061101
  2. HYDROCORTISONE [Concomitant]
     Indication: TSH DECREASED
     Dosage: UNK
     Dates: start: 19970212
  3. HYDROCORTISONE [Concomitant]
     Indication: PRIMARY HYPOTHYROIDISM
  4. LEVOTHYROXINE [Concomitant]
     Indication: TSH DECREASED
     Dosage: UNK
     Dates: start: 20050908
  5. LEVOTHYROXINE [Concomitant]
     Indication: PRIMARY HYPOTHYROIDISM
  6. DHEA [Concomitant]
     Indication: ACTH DECREASED
     Dosage: UNK
     Dates: start: 20060222
  7. ESTRADIOL [Concomitant]
     Indication: MENOPAUSAL SYMPTOMS
     Dosage: UNK
     Dates: start: 20060222
  8. THYRONAJOD [Concomitant]
     Indication: TSH DECREASED
     Dosage: UNK
     Dates: start: 20071101
  9. THYRONAJOD [Concomitant]
     Indication: PRIMARY HYPOGONADISM
  10. ANDROCUR [Concomitant]
     Indication: HYPERANDROGENISM
     Dosage: UNK
     Dates: start: 20060222

REACTIONS (1)
  - Eye disorder [Unknown]
